FAERS Safety Report 11125489 (Version 4)
Quarter: 2015Q3

REPORT INFORMATION
  Report Type: Spontaneous
  Country: US (occurrence: US)
  Receive Date: 20150520
  Receipt Date: 20150908
  Transmission Date: 20151125
  Serious: Yes (Hospitalization)
  Sender: FDA-Public Use
  Company Number: US-PFIZER INC-2015166258

PATIENT
  Age: 74 Year
  Sex: Male

DRUGS (10)
  1. NIACIN. [Concomitant]
     Active Substance: NIACIN
  2. VITAMIN D3 [Concomitant]
     Active Substance: CHOLECALCIFEROL
     Dosage: UNK (EVERY DAY)
     Route: 048
     Dates: start: 2010
  3. CRESTOR [Concomitant]
     Active Substance: ROSUVASTATIN CALCIUM
  4. VITAMIN B3 [Concomitant]
     Active Substance: NIACIN
  5. ISOSORBIDE. [Concomitant]
     Active Substance: ISOSORBIDE
  6. XARELTO [Suspect]
     Active Substance: RIVAROXABAN
     Indication: DEEP VEIN THROMBOSIS
     Dosage: 25 MG, UNK
     Route: 048
     Dates: start: 2010
  7. XARELTO [Suspect]
     Active Substance: RIVAROXABAN
     Indication: ANTICOAGULANT THERAPY
     Dosage: 15 MG, DAILY
     Dates: start: 20140811
  8. TYLENOL [Concomitant]
     Active Substance: ACETAMINOPHEN
     Indication: PAIN IN EXTREMITY
     Dosage: UNK, AS NEEDED
  9. BUMEX [Concomitant]
     Active Substance: BUMETANIDE
     Dosage: UNK, AS NEEDED
     Dates: start: 2010
  10. XARELTO [Suspect]
     Active Substance: RIVAROXABAN
     Indication: CARDIAC DISORDER
     Dosage: 15 MG, (FIVE DOSES)

REACTIONS (1)
  - Epistaxis [Recovered/Resolved]

NARRATIVE: CASE EVENT DATE: 2013
